FAERS Safety Report 8155597-5 (Version None)
Quarter: 2012Q1

REPORT INFORMATION
  Report Type: 
  Country: None (occurrence: None)
  Receive Date: 20120222
  Receipt Date: 20120216
  Transmission Date: 20120608
  Serious: No
  Sender: FDA-Public Use
  Company Number: US-PFIZER INC-2012042700

PATIENT
  Sex: Female
  Weight: 54.4 kg

DRUGS (2)
  1. GABAPENTIN [Suspect]
     Indication: PERIPHERAL COLDNESS
     Dosage: 100 MG, 3X/DAY
     Route: 048
     Dates: start: 20120204, end: 20120201
  2. GABAPENTIN [Suspect]
     Indication: PARAESTHESIA

REACTIONS (4)
  - VISION BLURRED [None]
  - ASTHENIA [None]
  - DIZZINESS [None]
  - FACE OEDEMA [None]
